FAERS Safety Report 5233479-6 (Version None)
Quarter: 2007Q1

REPORT INFORMATION
  Report Type: 
  Country: None (occurrence: None)
  Receive Date: 20061208
  Receipt Date: 20060310
  Transmission Date: 20070707
  Serious: Yes (Other)
  Sender: FDA-Public Use
  Company Number: 2006UW04169

PATIENT
  Age: 61 Year
  Sex: Female
  Weight: 79.378 kg

DRUGS (4)
  1. CRESTOR [Suspect]
     Indication: BLOOD CHOLESTEROL INCREASED
     Dosage: 20 MG PO
     Route: 048
     Dates: start: 20051201, end: 20060301
  2. VERAPAMIL [Concomitant]
  3. PREMARIN [Concomitant]
  4. AMILORIDE HCL AND HYDROCHLOROTHIAZIDE [Concomitant]

REACTIONS (2)
  - COUGH [None]
  - DYSPHONIA [None]
